FAERS Safety Report 9088939 (Version 1)
Quarter: 2013Q1

REPORT INFORMATION
  Report Type: Report from Study
  Country: US (occurrence: US)
  Receive Date: 20130131
  Receipt Date: 20130131
  Transmission Date: 20140127
  Serious: No
  Sender: FDA-Public Use
  Company Number: US-ABBOTT-12P-163-0994683-00

PATIENT
  Age: 49 Year
  Sex: Male

DRUGS (2)
  1. HUMIRA [Suspect]
     Indication: CROHN^S DISEASE
     Dosage: 160MG LOADING DOSE
     Dates: start: 20121010
  2. UNKNOWN PAIN MEDICATION [Concomitant]
     Indication: PAIN

REACTIONS (2)
  - Injection site pain [Not Recovered/Not Resolved]
  - Pain [Unknown]
